FAERS Safety Report 9744029 (Version 1)
Quarter: 2013Q4

REPORT INFORMATION
  Report Type: Spontaneous
  Country: SI (occurrence: SI)
  Receive Date: 20131210
  Receipt Date: 20131210
  Transmission Date: 20140711
  Serious: Yes (Other)
  Sender: FDA-Public Use
  Company Number: SI-UCBSA-104923

PATIENT
  Age: 40 Year
  Sex: Female
  Weight: 52 kg

DRUGS (5)
  1. CIMZIA [Suspect]
     Route: 058
     Dates: start: 20121126, end: 20130731
  2. METHOTREXATE [Suspect]
  3. BLOXAN [Concomitant]
  4. FOLACIN [Concomitant]
  5. LEKADOL [Concomitant]

REACTIONS (1)
  - Chronic hepatitis [Recovered/Resolved]
